FAERS Safety Report 7469356-X (Version None)
Quarter: 2011Q2

REPORT INFORMATION
  Report Type: 
  Country: None (occurrence: None)
  Receive Date: 20110510
  Receipt Date: 20110426
  Transmission Date: 20111010
  Serious: Yes (Hospitalization, Other)
  Sender: FDA-Public Use
  Company Number: US-ELI_LILLY_AND_COMPANY-US201104006396

PATIENT
  Sex: Female

DRUGS (1)
  1. FORTEO [Suspect]
     Indication: OSTEOPOROSIS
     Dosage: 20 UG, QD
     Dates: start: 20110201, end: 20110426

REACTIONS (6)
  - HAEMORRHAGE [None]
  - FALL [None]
  - THROAT LESION [None]
  - HAEMATOCHEZIA [None]
  - HEAD INJURY [None]
  - SPEECH DISORDER [None]
